FAERS Safety Report 7788489-1 (Version None)
Quarter: 2011Q3

REPORT INFORMATION
  Report Type: 
  Country: None (occurrence: None)
  Receive Date: 20110930
  Receipt Date: 20110921
  Transmission Date: 20111222
  Serious: Yes (Hospitalization, Other)
  Sender: FDA-Public Use
  Company Number: PHHY2009GB29496

PATIENT
  Sex: Male

DRUGS (3)
  1. ARIPIPRAZOLE [Concomitant]
  2. CLOZAPINE [Suspect]
     Indication: SCHIZOPHRENIA
     Dates: start: 20050201
  3. AMISULPRIDE [Suspect]

REACTIONS (6)
  - SEXUAL DYSFUNCTION [None]
  - MENTAL IMPAIRMENT [None]
  - BLOOD PROLACTIN INCREASED [None]
  - INSOMNIA [None]
  - DELUSION [None]
  - AGGRESSION [None]
